FAERS Safety Report 10414564 (Version 1)
Quarter: 2014Q3

REPORT INFORMATION
  Report Type: Spontaneous
  Country: US (occurrence: US)
  Receive Date: 20140828
  Receipt Date: 20140828
  Transmission Date: 20150326
  Serious: No
  Sender: FDA-Public Use
  Company Number: US-009507513-1408USA013473

PATIENT
  Sex: Female

DRUGS (1)
  1. NUVARING [Suspect]
     Active Substance: ETHINYL ESTRADIOL\ETONOGESTREL
     Indication: CONTRACEPTION
     Dosage: UNK
     Route: 066
     Dates: start: 2012, end: 2014

REACTIONS (4)
  - Urinary tract infection [Unknown]
  - Unintended pregnancy [Unknown]
  - Incorrect route of drug administration [Unknown]
  - Incorrect drug administration duration [Unknown]

NARRATIVE: CASE EVENT DATE: 2012
